FAERS Safety Report 16256137 (Version 2)
Quarter: 2019Q2

REPORT INFORMATION
  Report Type: Spontaneous
  Country: DE (occurrence: DE)
  Receive Date: 20190430
  Receipt Date: 20190523
  Transmission Date: 20190711
  Serious: Yes (Hospitalization, Other)
  Sender: FDA-Public Use
  Company Number: DE-ROCHE-2309829

PATIENT
  Sex: Female

DRUGS (1)
  1. XOLAIR [Suspect]
     Active Substance: OMALIZUMAB
     Indication: CHRONIC SPONTANEOUS URTICARIA
     Route: 065
     Dates: start: 201705

REACTIONS (7)
  - Injection related reaction [Unknown]
  - Fall [Unknown]
  - Anaphylactic reaction [Unknown]
  - Skull fractured base [Unknown]
  - Cerebral haemorrhage [Unknown]
  - Therapeutic product effect incomplete [Unknown]
  - Hypersensitivity [Recovering/Resolving]

NARRATIVE: CASE EVENT DATE: 2018
